FAERS Safety Report 23737413 (Version 1)
Quarter: 2024Q2

REPORT INFORMATION
  Report Type: Spontaneous
  Country: US (occurrence: US)
  Receive Date: 20240412
  Receipt Date: 20240412
  Transmission Date: 20240716
  Serious: Yes (Other)
  Sender: FDA-Public Use
  Company Number: US-TEVA-VS-3179298

PATIENT
  Age: 73 Year
  Sex: Female
  Weight: 72.575 kg

DRUGS (5)
  1. CARBIDOPA AND LEVODOPA [Suspect]
     Active Substance: CARBIDOPA\LEVODOPA
     Indication: Parkinson^s disease
     Dosage: 25-100 MG-MG?2 TABLETS THREE TO FOUR TIMES A DAY
     Route: 048
  2. ANASTROZOLE [Concomitant]
     Active Substance: ANASTROZOLE
  3. ALLOPURINOL [Concomitant]
     Active Substance: ALLOPURINOL
  4. BUSPIRONE [Concomitant]
     Active Substance: BUSPIRONE HYDROCHLORIDE
  5. NORTRIPTYLINE [Concomitant]
     Active Substance: NORTRIPTYLINE

REACTIONS (4)
  - Nephrolithiasis [Unknown]
  - Breast cancer [Unknown]
  - Vomiting [Unknown]
  - Intentional product use issue [Unknown]
